FAERS Safety Report 15849780 (Version 5)
Quarter: 2020Q2

REPORT INFORMATION
  Report Type: Report from Study
  Country: BR (occurrence: BR)
  Receive Date: 20190121
  Receipt Date: 20200612
  Transmission Date: 20200713
  Serious: Yes (Death, Life-Threatening, Hospitalization, Other)
  Sender: FDA-Public Use
  Company Number: PHHY2019BR010130

PATIENT
  Age: 73 Year
  Sex: Female

DRUGS (8)
  1. ELIQUIS [Concomitant]
     Active Substance: APIXABAN
     Indication: PRODUCT USED FOR UNKNOWN INDICATION
     Route: 065
  2. EXELON PATCH [Suspect]
     Active Substance: RIVASTIGMINE
     Dosage: 13.3 MG, QD PATCH 15 (CM2)
     Route: 062
     Dates: start: 2002
  3. EXELON PATCH [Suspect]
     Active Substance: RIVASTIGMINE
     Dosage: UNK
     Route: 065
     Dates: start: 2005, end: 20190826
  4. EXELON [Suspect]
     Active Substance: RIVASTIGMINE TARTRATE
     Indication: SENILE DEMENTIA
     Dosage: UNK
     Route: 048
     Dates: start: 20051012, end: 200512
  5. HIDANTAL [Concomitant]
     Active Substance: PHENYTOIN SODIUM
     Indication: PRODUCT USED FOR UNKNOWN INDICATION
     Route: 065
  6. EXELON PATCH [Suspect]
     Active Substance: RIVASTIGMINE
     Indication: SENILE DEMENTIA
     Dosage: 4.6 MG, QD PATCH 5 (CM2)
     Route: 062
     Dates: start: 2002
  7. EXELON PATCH [Suspect]
     Active Substance: RIVASTIGMINE
     Dosage: 9.5 MG, QD PATCH 10 (CM2)
     Route: 062
     Dates: start: 2002
  8. EXELON PATCH [Suspect]
     Active Substance: RIVASTIGMINE
     Dosage: UNK
     Route: 065
     Dates: start: 2005, end: 20190823

REACTIONS (20)
  - Loss of consciousness [Unknown]
  - Product use in unapproved indication [Unknown]
  - Tremor [Unknown]
  - General physical health deterioration [Unknown]
  - Cerebrovascular accident [Recovered/Resolved with Sequelae]
  - Femur fracture [Unknown]
  - Hepatic enzyme increased [Unknown]
  - Cardiac arrest [Fatal]
  - Seizure [Unknown]
  - Femur fracture [Unknown]
  - Pancreatitis [Unknown]
  - Drug ineffective [Unknown]
  - Septic shock [Fatal]
  - Vascular injury [Recovered/Resolved]
  - Gastrointestinal disorder [Recovering/Resolving]
  - Weight decreased [Unknown]
  - Hypertension [Fatal]
  - Presyncope [Unknown]
  - Femur fracture [Unknown]
  - Hypoglycaemia [Not Recovered/Not Resolved]

NARRATIVE: CASE EVENT DATE: 200512
